FAERS Safety Report 16341812 (Version 1)
Quarter: 2019Q2

REPORT INFORMATION
  Report Type: Spontaneous
  Country: NL (occurrence: NL)
  Receive Date: 20190522
  Receipt Date: 20190522
  Transmission Date: 20190711
  Serious: Yes (Other)
  Sender: FDA-Public Use
  Company Number: NL-ACCORD-128851

PATIENT
  Sex: Male
  Weight: 88 kg

DRUGS (2)
  1. FINASTERIDE. [Suspect]
     Active Substance: FINASTERIDE
     Indication: PROSTATIC DISORDER
     Dosage: STRENGTH 5 MG, 1 X PER DAY
     Dates: start: 201804, end: 201807
  2. EZETIMIBE. [Concomitant]
     Active Substance: EZETIMIBE
     Dosage: STRENGTH 10 MG

REACTIONS (2)
  - Palpitations [Recovering/Resolving]
  - Arrhythmia [Recovering/Resolving]
